FAERS Safety Report 4578772-5 (Version None)
Quarter: 2005Q1

REPORT INFORMATION
  Report Type: 
  Country: None (occurrence: None)
  Receive Date: 20050211
  Receipt Date: 20050202
  Transmission Date: 20050727
  Serious: Yes (Other)
  Sender: FDA-Public Use
  Company Number: JP-JNJFOC-20031203473

PATIENT
  Age: 59 Year
  Sex: Female

DRUGS (1)
  1. OFLOXACIN [Suspect]
     Indication: OTITIS MEDIA ACUTE
     Route: 049
     Dates: start: 20030326, end: 20030408

REACTIONS (2)
  - AGEUSIA [None]
  - ANOSMIA [None]
